FAERS Safety Report 9175727 (Version 1)
Quarter: 2013Q1

REPORT INFORMATION
  Report Type: Spontaneous
  Country: EC (occurrence: EC)
  Receive Date: 20130320
  Receipt Date: 20130320
  Transmission Date: 20140127
  Serious: Yes (Other)
  Sender: FDA-Public Use
  Company Number: EC-PFIZER INC-2013084854

PATIENT
  Age: 55 Year
  Sex: Female

DRUGS (3)
  1. LYRICA [Suspect]
     Route: 048
  2. LIPITOR [Suspect]
     Route: 048
  3. NORVASC [Suspect]
     Route: 048

REACTIONS (1)
  - Limb operation [Unknown]
